FAERS Safety Report 18249023 (Version 1)
Quarter: 2020Q3

REPORT INFORMATION
  Report Type: Report from Study
  Country: US (occurrence: US)
  Receive Date: 20200909
  Receipt Date: 20200909
  Transmission Date: 20201103
  Serious: Yes (Life-Threatening, Hospitalization)
  Sender: FDA-Public Use
  Company Number: US-MYLANLABS-2020M1077734

PATIENT
  Age: 47 Year
  Sex: Male

DRUGS (6)
  1. EPINEPHRINE. [Suspect]
     Active Substance: EPINEPHRINE
     Indication: SHOCK
     Dosage: 200 MICROGRAM, TOTAL(ADDITIONAL PUSH DOSE BOLUSES ADMINISTERED DURING DIALYSIS)
     Route: 040
  2. NOREPINEPHRINE. [Suspect]
     Active Substance: NOREPINEPHRINE
     Indication: SHOCK
     Dosage: 0 TO 2.0 MICROG/KG/MIN
     Route: 065
  3. EPINEPHRINE. [Suspect]
     Active Substance: EPINEPHRINE
     Indication: SHOCK
     Dosage: 0 TO 0.5 MICROG/KG/MIN
     Route: 065
  4. PHENYLEPHRINE [Suspect]
     Active Substance: PHENYLEPHRINE HYDROCHLORIDE
     Indication: SHOCK
     Dosage: 0 TO 1.5 MICROG/KG/MIN
     Route: 065
  5. VASOPRESSIN. [Suspect]
     Active Substance: VASOPRESSIN
     Indication: SHOCK
     Dosage: 0 TO 0.04 UNITS/MIN
     Route: 065
  6. METFORMIN [Suspect]
     Active Substance: METFORMIN HYDROCHLORIDE
     Indication: PRODUCT USED FOR UNKNOWN INDICATION
     Dosage: 90 GRAM, TOTAL(PRESCRIBED DOSE: 1000MG TWICE DAILY)
     Route: 048

REACTIONS (7)
  - Lactic acidosis [Recovered/Resolved]
  - Overdose [Recovered/Resolved]
  - Drug ineffective [Unknown]
  - Respiratory failure [Unknown]
  - Toxicity to various agents [Recovered/Resolved]
  - Renal tubular necrosis [Unknown]
  - Shock [Recovered/Resolved]
